FAERS Safety Report 7586114-6 (Version None)
Quarter: 2011Q3

REPORT INFORMATION
  Report Type: 
  Country: None (occurrence: None)
  Receive Date: 20110701
  Receipt Date: 20110622
  Transmission Date: 20111222
  Serious: Yes (Hospitalization)
  Sender: FDA-Public Use
  Company Number: IL-MILLENNIUM PHARMACEUTICALS, INC.-2011-01544

PATIENT

DRUGS (19)
  1. COUMADIN [Concomitant]
     Indication: ATRIAL FIBRILLATION
     Dosage: 4 MG, UNK
     Route: 048
     Dates: start: 20110403
  2. IKACOR [Concomitant]
     Indication: ATRIAL FIBRILLATION
     Dosage: 5 MG, UNK
     Route: 042
     Dates: start: 20110316, end: 20110316
  3. RYTHMEX [Concomitant]
     Indication: ATRIAL FIBRILLATION
     Dosage: 150 MG, TID
     Route: 048
     Dates: start: 20110319
  4. OXYCODONE HYDROCHLORIDE [Concomitant]
     Indication: MUSCULOSKELETAL CHEST PAIN
     Dosage: 4 ML, PRN
     Route: 048
     Dates: start: 20110315
  5. COUMADIN [Concomitant]
     Dosage: 5 MG, QD
     Route: 048
     Dates: start: 20110330, end: 20110402
  6. PRAMIN                             /00041901/ [Concomitant]
     Indication: NAUSEA
     Dosage: 10 MG, PRN
     Route: 048
     Dates: start: 20110403
  7. VELCADE [Suspect]
     Indication: MULTIPLE MYELOMA
     Dosage: 2.5 MG, 2/WEEK
     Route: 042
     Dates: start: 20110327, end: 20110406
  8. ASPIRIN [Concomitant]
     Indication: HYPERTENSION
     Dosage: 100 MG, UNK
     Route: 048
  9. ENOXAPARIN SODIUM [Concomitant]
     Indication: ATRIAL FIBRILLATION
     Dosage: 40 MG, UNK
     Route: 058
     Dates: start: 20110330, end: 20110403
  10. AREDIA [Concomitant]
     Indication: BONE LESION
     Dosage: 30 MG, MONTHLY
     Route: 042
     Dates: start: 20110324
  11. ZOVIRAX                            /00587301/ [Concomitant]
     Indication: INFECTION PROPHYLAXIS
     Dosage: 400 MG, UNK
     Route: 048
     Dates: start: 20110327
  12. RESPRIM [Concomitant]
     Indication: INFECTION PROPHYLAXIS
     Dosage: 1 UNK, UNK
     Route: 048
     Dates: start: 20110327
  13. PREDNISONE [Suspect]
     Indication: MULTIPLE MYELOMA
     Dosage: 115 MG, QD
     Route: 048
     Dates: start: 20110327
  14. OMNIC [Concomitant]
     Indication: BENIGN PROSTATIC HYPERPLASIA
     Dosage: 4 MG, UNK
     Route: 048
  15. ENOXAPARIN SODIUM [Concomitant]
     Dosage: 60 MG, UNK
     Route: 058
     Dates: start: 20110318, end: 20110329
  16. OXYCONTIN [Concomitant]
     Indication: MUSCULOSKELETAL CHEST PAIN
     Dosage: 10 MG, BID
     Route: 048
     Dates: start: 20110315
  17. VASODIP [Concomitant]
     Indication: HYPERTENSION
     Dosage: 5 MG, UNK
     Route: 048
  18. MELPHALAN HYDROCHLORIDE [Suspect]
     Indication: MULTIPLE MYELOMA
     Dosage: 16 MG, QD
     Route: 048
     Dates: start: 20110327
  19. DIOVAN [Concomitant]
     Indication: HYPERTENSION
     Dosage: 120 MG, UNK
     Route: 048

REACTIONS (1)
  - VIRAL INFECTION [None]
